FAERS Safety Report 20680299 (Version 1)
Quarter: 2022Q2

REPORT INFORMATION
  Report Type: Spontaneous
  Country: US (occurrence: None)
  Receive Date: 20220405
  Receipt Date: 20220405
  Transmission Date: 20220720
  Serious: Yes (unspecified)
  Sender: FDA-Public Use
  Company Number: None

PATIENT
  Age: 56 Year
  Sex: Male

DRUGS (1)
  1. TRELSTAR [Suspect]
     Active Substance: TRIPTORELIN PAMOATE

REACTIONS (3)
  - Hypoaesthesia [None]
  - Paraesthesia [None]
  - Sciatic nerve injury [None]

NARRATIVE: CASE EVENT DATE: 20220328
